FAERS Safety Report 9847522 (Version 1)
Quarter: 2014Q1

REPORT INFORMATION
  Report Type: Report from Study
  Country: US (occurrence: US)
  Receive Date: 20140128
  Receipt Date: 20140128
  Transmission Date: 20141002
  Serious: Yes (Other)
  Sender: FDA-Public Use
  Company Number: US-ROCHE-1335082

PATIENT
  Sex: Female
  Weight: 104.78 kg

DRUGS (9)
  1. NUTROPIN AQ [Suspect]
     Indication: GROWTH HORMONE DEFICIENCY
     Route: 058
  2. VALTREX [Concomitant]
     Route: 048
  3. PAMELOR [Concomitant]
     Route: 048
  4. DETROL LA [Concomitant]
     Route: 048
  5. MINOCYCLINE [Concomitant]
     Route: 048
  6. OMEGA-3 PLUS E [Concomitant]
     Route: 048
  7. SYNTHROID [Concomitant]
     Route: 048
  8. VITAMIN B12 [Concomitant]
     Route: 048
  9. VITAMIN D2 [Concomitant]
     Route: 048

REACTIONS (8)
  - Local swelling [Unknown]
  - Headache [Unknown]
  - Palpitations [Unknown]
  - Memory impairment [Unknown]
  - Hair growth abnormal [Unknown]
  - Onychoclasis [Unknown]
  - Gastrooesophageal reflux disease [Unknown]
  - Weight increased [Unknown]
